FAERS Safety Report 5756025-7 (Version None)
Quarter: 2008Q2

REPORT INFORMATION
  Report Type: 
  Country: None (occurrence: None)
  Receive Date: 20080602
  Receipt Date: 20080523
  Transmission Date: 20081010
  Serious: Yes (Hospitalization)
  Sender: FDA-Public Use
  Company Number: PHHY2008FR09110

PATIENT
  Sex: Female

DRUGS (1)
  1. ZADITEN [Suspect]
     Dosage: 1/2 DOSE

REACTIONS (2)
  - CONVULSION [None]
  - PYREXIA [None]
